FAERS Safety Report 8298965-3 (Version None)
Quarter: 2012Q2

REPORT INFORMATION
  Report Type: 
  Country: None (occurrence: None)
  Receive Date: 20120419
  Receipt Date: 20120412
  Transmission Date: 20120825
  Serious: Yes (Death)
  Sender: FDA-Public Use
  Company Number: JP-MERCK-1204USA02306

PATIENT
  Age: 79 Year
  Sex: Male

DRUGS (16)
  1. JANUVIA [Suspect]
     Indication: DIABETES MELLITUS
     Route: 048
     Dates: start: 20120402, end: 20120410
  2. SEROQUEL [Concomitant]
     Route: 048
  3. WARFARIN [Concomitant]
     Route: 048
  4. VITAMIN B12 [Concomitant]
     Route: 048
  5. BASEN OD [Concomitant]
     Route: 048
     Dates: start: 20120320
  6. PLAVIX [Concomitant]
     Route: 048
  7. BISOPROLOL FUMARATE [Concomitant]
     Route: 048
  8. PURSENNID (SENNOSIDES) [Concomitant]
     Route: 048
  9. ADALAT [Concomitant]
     Indication: BLOOD PRESSURE INCREASED
     Route: 048
  10. AMARYL [Concomitant]
     Route: 048
  11. MERISLON [Concomitant]
     Route: 048
  12. GEBEN [Concomitant]
     Route: 061
  13. ALDACTONE [Concomitant]
     Route: 048
  14. ASPIRIN [Concomitant]
     Route: 048
  15. LANSOPRAZOLE [Concomitant]
     Route: 048
  16. FUROSEMIDE [Concomitant]
     Route: 048
     Dates: start: 20120320

REACTIONS (1)
  - INTERSTITIAL LUNG DISEASE [None]
